FAERS Safety Report 7649024-1 (Version None)
Quarter: 2011Q3

REPORT INFORMATION
  Report Type: 
  Country: None (occurrence: None)
  Receive Date: 20110802
  Receipt Date: 20110723
  Transmission Date: 20111222
  Serious: Yes (Hospitalization, Other)
  Sender: FDA-Public Use
  Company Number: KR-PAR PHARMACEUTICAL, INC-2011SCPR003130

PATIENT

DRUGS (2)
  1. IBUPROFEN [Suspect]
     Indication: BACK PAIN
     Dosage: 200 MG THREE TIMES DAILY
     Route: 065
  2. ERLOTINIB HYDROCHLORIDE [Suspect]
     Indication: LUNG ADENOCARCINOMA METASTATIC
     Dosage: UNK UNK, UNKNOWN
     Route: 065
     Dates: start: 20081001

REACTIONS (3)
  - ENTEROCUTANEOUS FISTULA [None]
  - INTESTINAL PERFORATION [None]
  - PNEUMONIA [None]
